FAERS Safety Report 9168810 (Version 1)
Quarter: 2013Q1

REPORT INFORMATION
  Report Type: Spontaneous
  Country: US (occurrence: US)
  Receive Date: 20130318
  Receipt Date: 20130318
  Transmission Date: 20140127
  Serious: Yes (Other)
  Sender: FDA-Public Use
  Company Number: US-PFIZER INC-2013087337

PATIENT
  Age: 46 Year
  Sex: Female

DRUGS (2)
  1. SOLU-MEDROL [Suspect]
     Dosage: UNK
     Dates: start: 201112
  2. SOLU-MEDROL [Suspect]
     Dosage: UNK
     Dates: start: 201206

REACTIONS (1)
  - Respiratory failure [Recovered/Resolved]
